FAERS Safety Report 8309873 (Version 2)
Quarter: 2013Q3

REPORT INFORMATION
  Report Type: Spontaneous
  Country: ES (occurrence: ES)
  Receive Date: 20111223
  Receipt Date: 20130828
  Transmission Date: 20140515
  Serious: Yes (Hospitalization, Other)
  Sender: FDA-Public Use
  Company Number: ES-JNJFOC-20111207578

PATIENT
  Age: 50 Year
  Sex: Male

DRUGS (2)
  1. REMICADE [Suspect]
     Indication: PSORIASIS
     Dosage: PT RECEIVED 4 YEARS OF TREATMENT
     Route: 042
  2. CORTICOSTEROID [Suspect]
     Indication: PSORIASIS
     Route: 065

REACTIONS (1)
  - Cutaneous leishmaniasis [Recovered/Resolved]
